FAERS Safety Report 26007207 (Version 1)
Quarter: 2025Q4

REPORT INFORMATION
  Report Type: Spontaneous
  Country: US (occurrence: US)
  Receive Date: 20251106
  Receipt Date: 20251106
  Transmission Date: 20260117
  Serious: Yes (Other)
  Sender: AMGEN
  Company Number: US-AMGEN-USASP2025214527

PATIENT

DRUGS (2)
  1. ADALIMUMAB [Suspect]
     Active Substance: ADALIMUMAB
     Indication: Dermatomyositis
     Dosage: UNK
     Route: 065
  2. RITUXIMAB [Suspect]
     Active Substance: RITUXIMAB
     Indication: Dermatomyositis
     Dosage: UNK
     Route: 065

REACTIONS (1)
  - Dermatomyositis [Unknown]
